FAERS Safety Report 21684511 (Version 1)
Quarter: 2022Q4

REPORT INFORMATION
  Report Type: Spontaneous
  Country: SK (occurrence: SK)
  Receive Date: 20221205
  Receipt Date: 20221205
  Transmission Date: 20230112
  Serious: Yes (Hospitalization)
  Sender: FDA-Public Use
  Company Number: SK-ACRAF SpA-2022-029199

PATIENT

DRUGS (1)
  1. XCOPRI [Suspect]
     Active Substance: CENOBAMATE
     Indication: Epilepsy
     Dosage: 12.5 MILLIGRAM
     Route: 048
     Dates: start: 20220822, end: 20220829

REACTIONS (3)
  - Partial seizures with secondary generalisation [Recovering/Resolving]
  - Change in seizure presentation [Recovering/Resolving]
  - Postictal psychosis [Recovering/Resolving]

NARRATIVE: CASE EVENT DATE: 20220829
